FAERS Safety Report 10606476 (Version 1)
Quarter: 2014Q4

REPORT INFORMATION
  Report Type: Spontaneous
  Country: US (occurrence: None)
  Receive Date: 20141124
  Receipt Date: 20141124
  Transmission Date: 20150529
  Serious: No
  Sender: FDA-Public Use
  Company Number: None

PATIENT
  Age: 65 Year
  Sex: Female
  Weight: 68.95 kg

DRUGS (1)
  1. TRETINOIN CREAM [Suspect]
     Active Substance: TRETINOIN
     Indication: PHOTOSENSITIVITY REACTION
     Dosage: SMALL AMOUNT NIGHTLY ?AT BEDTIME?APPLIED TO A SURFACE USUALLY THE SKIN
     Route: 061
     Dates: start: 20141110, end: 20141113

REACTIONS (3)
  - Sunburn [None]
  - Skin exfoliation [None]
  - Erythema [None]

NARRATIVE: CASE EVENT DATE: 20141110
